FAERS Safety Report 8739926 (Version 3)
Quarter: 2012Q4

REPORT INFORMATION
  Report Type: 
  Country: JP (occurrence: JP)
  Receive Date: 20120823
  Receipt Date: 20121003
  Transmission Date: 20130627
  Serious: Yes (Other)
  Sender: FDA-Public Use
  Company Number: JP-009507513-1208JPN001376

PATIENT
  Age: 69 Year
  Sex: Female
  Weight: 49 kg

DRUGS (10)
  1. REBETOL [Suspect]
     Indication: HEPATITIS C
     Dosage: 200 mg, qd
     Route: 048
     Dates: start: 20110428
  2. FERON [Suspect]
     Indication: HEPATIC NEOPLASM MALIGNANT
     Dosage: 3 million IU, qw
     Dates: start: 20071206, end: 200809
  3. FERON [Suspect]
     Dosage: 6 million IU, qd
     Route: 041
     Dates: start: 20110428, end: 20110509
  4. FERON [Suspect]
     Dosage: 6 million IU, bid
     Route: 041
     Dates: start: 20110510
  5. FERON [Suspect]
     Dosage: 3 million IU, bid
     Route: 041
     Dates: start: 20110510
  6. FERON [Suspect]
     Dosage: 3 million IU, qw
     Route: 041
  7. PEGASYS [Suspect]
     Indication: HEPATIC NEOPLASM MALIGNANT
     Dosage: 45 Microgram, q3w
     Route: 058
     Dates: start: 200809, end: 200812
  8. PEGASYS [Suspect]
     Dosage: 54 Microgram, q3w
     Route: 058
     Dates: start: 200901, end: 20110406
  9. LOXONIN [Concomitant]
  10. LIVACT [Concomitant]
     Indication: HEPATITIS C
     Dosage: UNK, tid
     Route: 048

REACTIONS (2)
  - Ileal ulcer [Not Recovered/Not Resolved]
  - White blood cell count decreased [Not Recovered/Not Resolved]
